FAERS Safety Report 13780060 (Version 3)
Quarter: 2017Q3

REPORT INFORMATION
  Report Type: Spontaneous
  Country: US (occurrence: US)
  Receive Date: 20170723
  Receipt Date: 20170831
  Transmission Date: 20171127
  Serious: Yes (Disabling)
  Sender: FDA-Public Use
  Company Number: US-009507513-1707USA006200

PATIENT
  Age: 68 Year
  Sex: Female

DRUGS (3)
  1. PNEUMOVAX 23 [Suspect]
     Active Substance: PNEUMOCOCCAL VACCINE, POLYVALENT 23
     Indication: PROPHYLAXIS
     Dates: start: 20170607, end: 20170607
  2. STERILE DILUENT [Suspect]
     Active Substance: WATER
     Indication: PROPHYLAXIS
     Dosage: UNK, RIGHT ARM
     Dates: start: 20170607, end: 20170607
  3. ZOSTAVAX [Suspect]
     Active Substance: VARICELLA-ZOSTER VIRUS STRAIN OKA/MERCK LIVE ANTIGEN
     Indication: PROPHYLAXIS
     Dates: start: 20170607, end: 20170607

REACTIONS (6)
  - Product use issue [Unknown]
  - Sciatica [Not Recovered/Not Resolved]
  - Herpes zoster [Unknown]
  - Feeding disorder [Unknown]
  - Tremor [Unknown]
  - Decreased appetite [Unknown]

NARRATIVE: CASE EVENT DATE: 20170607
